FAERS Safety Report 6380955-9 (Version None)
Quarter: 2009Q3

REPORT INFORMATION
  Report Type: 
  Country: None (occurrence: None)
  Receive Date: 20090929
  Receipt Date: 20090917
  Transmission Date: 20100115
  Serious: Yes (Hospitalization)
  Sender: FDA-Public Use
  Company Number: AU-ELI_LILLY_AND_COMPANY-AU200908002985

PATIENT
  Sex: Female

DRUGS (5)
  1. CYMBALTA [Suspect]
     Dosage: 30 MG, 2/W
     Route: 065
     Dates: start: 20090326
  2. CYMBALTA [Suspect]
     Dosage: 60 MG, UNKNOWN
     Route: 048
     Dates: start: 20090409, end: 20090423
  3. CYMBALTA [Suspect]
     Dosage: 120 MG, UNKNOWN
     Route: 065
     Dates: end: 20090101
  4. FLUOXETINE [Concomitant]
     Indication: DEPRESSION
     Dosage: 40 MG, UNKNOWN
     Route: 065
     Dates: start: 20090829
  5. SEROQUEL [Concomitant]
     Indication: AGITATED DEPRESSION
     Dosage: 25 MG, UNKNOWN
     Route: 065
     Dates: start: 20081008

REACTIONS (6)
  - DEPRESSED MOOD [None]
  - DRUG INEFFECTIVE [None]
  - NAUSEA [None]
  - NO THERAPEUTIC RESPONSE [None]
  - OEDEMA PERIPHERAL [None]
  - SUICIDAL BEHAVIOUR [None]
